FAERS Safety Report 9674640 (Version 1)
Quarter: 2013Q4

REPORT INFORMATION
  Report Type: Spontaneous
  Country: US (occurrence: None)
  Receive Date: 20131106
  Receipt Date: 20131106
  Transmission Date: 20140711
  Serious: No
  Sender: FDA-Public Use
  Company Number: None

PATIENT
  Age: 34 Year
  Sex: Female
  Weight: 54.43 kg

DRUGS (1)
  1. MIRVASO [Suspect]
     Indication: ROSACEA
     Dosage: 3 PEA SIZE AMOUNTS  ONCE DAILY APPLIED TO A SURFACE, USUALLY THE SKIN

REACTIONS (3)
  - Erythema [None]
  - Burning sensation [None]
  - Flushing [None]
